FAERS Safety Report 4471406-X (Version None)
Quarter: 2004Q4

REPORT INFORMATION
  Report Type: 
  Country: None (occurrence: None)
  Receive Date: 20041007
  Receipt Date: 20040926
  Transmission Date: 20050328
  Serious: Yes (Other)
  Sender: FDA-Public Use
  Company Number: 2004069800

PATIENT
  Age: 23 Year
  Sex: Female
  Weight: 81.6475 kg

DRUGS (7)
  1. DRAMAMINE-D TAB [Suspect]
     Indication: NAUSEA
     Dosage: 2 TABLETS TWICE DAILY, ORAL
     Route: 048
     Dates: start: 20040901, end: 20040926
  2. MERCAPTOPURINE [Concomitant]
  3. CITALOPRAM HYDROBROMIDE (CITALOPRAM HYDROBROMIDE) [Concomitant]
  4. ZOLPIDEM TARTRATE [Concomitant]
  5. BACTRIM [Concomitant]
  6. CILEST (ETHINYLESTRADIOL, NORGESTIMATE) [Concomitant]
  7. METHOTREXATE [Concomitant]

REACTIONS (2)
  - DRUG INEFFECTIVE [None]
  - HEADACHE [None]
